FAERS Safety Report 4891998-6 (Version None)
Quarter: 2006Q1

REPORT INFORMATION
  Report Type: 
  Country: None (occurrence: None)
  Receive Date: 20060126
  Receipt Date: 20060117
  Transmission Date: 20060701
  Serious: Yes (Other)
  Sender: FDA-Public Use
  Company Number: JP-BRISTOL-MYERS SQUIBB COMPANY-13250212

PATIENT
  Age: 55 Year
  Sex: Male

DRUGS (1)
  1. CISPLATIN [Suspect]

REACTIONS (1)
  - CERVICOBRACHIAL SYNDROME [None]
